FAERS Safety Report 16342878 (Version 4)
Quarter: 2019Q3

REPORT INFORMATION
  Report Type: Report from Study
  Country: FR (occurrence: FR)
  Receive Date: 20190522
  Receipt Date: 20190803
  Transmission Date: 20191004
  Serious: Yes (Death, Hospitalization, Other)
  Sender: FDA-Public Use
  Company Number: FR-JAZZ-2019-FR-006939

PATIENT

DRUGS (3)
  1. CYMEVAN [Concomitant]
     Active Substance: GANCICLOVIR
     Indication: PROPHYLAXIS
  2. DEFITELIO [Suspect]
     Active Substance: DEFIBROTIDE SODIUM
     Indication: VENOOCCLUSIVE LIVER DISEASE
     Dosage: 28.57 MG/KG/DAY
     Route: 042
     Dates: start: 20180312, end: 20180420
  3. DEFITELIO [Suspect]
     Active Substance: DEFIBROTIDE SODIUM
     Dosage: 8.8 MG/KG/DAY
     Route: 042
     Dates: start: 20180420, end: 20180428

REACTIONS (6)
  - Autoimmune disorder [Fatal]
  - Multiple organ dysfunction syndrome [Fatal]
  - Septic shock [Fatal]
  - Lung infection [Fatal]
  - Underdose [Unknown]
  - Overdose [Unknown]

NARRATIVE: CASE EVENT DATE: 20180312
